FAERS Safety Report 13474978 (Version 2)
Quarter: 2017Q3

REPORT INFORMATION
  Report Type: Report from Study
  Country: US (occurrence: US)
  Receive Date: 20170424
  Receipt Date: 20170705
  Transmission Date: 20171127
  Serious: Yes (Other)
  Sender: FDA-Public Use
  Company Number: US-AMGEN-USASP2017041462

PATIENT
  Age: 67 Year
  Sex: Male

DRUGS (1)
  1. REPATHA [Suspect]
     Active Substance: EVOLOCUMAB
     Indication: BLOOD CHOLESTEROL INCREASED
     Dosage: 140 MG, Q2WK
     Route: 065
     Dates: start: 20160817

REACTIONS (7)
  - Back pain [Unknown]
  - Swelling [Unknown]
  - Influenza [Unknown]
  - Renal cyst [Unknown]
  - Abdominal discomfort [Unknown]
  - Bladder squamous cell carcinoma stage unspecified [Unknown]
  - Injection site vesicles [Unknown]
